FAERS Safety Report 24826858 (Version 1)
Quarter: 2025Q1

REPORT INFORMATION
  Report Type: Spontaneous
  Country: GB (occurrence: GB)
  Receive Date: 20250109
  Receipt Date: 20250109
  Transmission Date: 20250409
  Serious: Yes (Other)
  Sender: SANDOZ
  Company Number: None

PATIENT
  Age: 61 Year
  Weight: 69 kg

DRUGS (1)
  1. ESTRADIOL [Suspect]
     Active Substance: ESTRADIOL
     Indication: Postmenopause
     Route: 062
     Dates: start: 20241211

REACTIONS (5)
  - Anxiety [Unknown]
  - Neuralgia [Recovering/Resolving]
  - Muscle tightness [Recovering/Resolving]
  - Vulvovaginal dryness [Recovered/Resolved]
  - Depression [Recovering/Resolving]

NARRATIVE: CASE EVENT DATE: 20241212
